FAERS Safety Report 7292838-0 (Version None)
Quarter: 2011Q1

REPORT INFORMATION
  Report Type: 
  Country: None (occurrence: None)
  Receive Date: 20110203
  Receipt Date: 20110120
  Transmission Date: 20110831
  Serious: Yes (Hospitalization)
  Sender: FDA-Public Use
  Company Number: 006358

PATIENT
  Sex: Female
  Weight: 80 kg

DRUGS (1)
  1. CIMZIA [Suspect]
     Indication: RHEUMATOID ARTHRITIS
     Dosage: 400 MG 1X/MONTH, MONTHLY SUBCUTANEOUS
     Route: 058
     Dates: start: 20040526, end: 20100125

REACTIONS (12)
  - ASTHENIA [None]
  - BILIARY TRACT DISORDER [None]
  - BRONCHOPNEUMONIA [None]
  - MALAISE [None]
  - CONDITION AGGRAVATED [None]
  - BLOOD PRESSURE SYSTOLIC INCREASED [None]
  - RED BLOOD CELL COUNT DECREASED [None]
  - RENAL CYST [None]
  - HAEMOGLOBIN DECREASED [None]
  - DIABETES MELLITUS [None]
  - FATIGUE [None]
  - RETCHING [None]
